FAERS Safety Report 8477664-9 (Version None)
Quarter: 2012Q2

REPORT INFORMATION
  Report Type: 
  Country: None (occurrence: None)
  Receive Date: 20120629
  Receipt Date: 20120621
  Transmission Date: 20120825
  Serious: Yes (Hospitalization)
  Sender: FDA-Public Use
  Company Number: US-BAYER-2011-032279

PATIENT
  Age: 19 Year
  Sex: Female
  Weight: 47 kg

DRUGS (8)
  1. INHALER [Concomitant]
  2. YAZ [Suspect]
     Indication: CONTRACEPTION
     Dosage: UNK
     Dates: start: 20060101, end: 20090101
  3. ANTIBIOTICS [Concomitant]
  4. YASMIN [Suspect]
     Indication: DYSMENORRHOEA
  5. ADDERALL 5 [Concomitant]
     Indication: ATTENTION DEFICIT/HYPERACTIVITY DISORDER
     Dosage: 10 MG, UNK
     Dates: start: 20090101, end: 20100101
  6. DRYSOL [Concomitant]
     Dosage: UNK UNK, QD
     Route: 061
  7. YASMIN [Suspect]
     Indication: CONTRACEPTION
     Dosage: UNK
     Dates: start: 20060101, end: 20090101
  8. ADDERALL XR 10 [Concomitant]

REACTIONS (4)
  - PAIN [None]
  - MENTAL DISORDER [None]
  - GENITAL DISORDER FEMALE [None]
  - CEREBRAL THROMBOSIS [None]
